FAERS Safety Report 9753579 (Version 1)
Quarter: 2013Q4

REPORT INFORMATION
  Report Type: Spontaneous
  Country: US (occurrence: US)
  Receive Date: 20131213
  Receipt Date: 20131213
  Transmission Date: 20140711
  Serious: Yes (Other)
  Sender: FDA-Public Use
  Company Number: US-PFIZER INC-2013355305

PATIENT
  Age: 72 Year
  Sex: Female

DRUGS (1)
  1. EFFEXOR XR [Suspect]
     Dosage: 37.5 MG, 2X/DAY

REACTIONS (2)
  - Arthropathy [Unknown]
  - Dizziness [Unknown]
